FAERS Safety Report 5854508-2 (Version None)
Quarter: 2008Q3

REPORT INFORMATION
  Report Type: 
  Country: None (occurrence: None)
  Receive Date: 20080822
  Receipt Date: 20070814
  Transmission Date: 20090109
  Serious: No
  Sender: FDA-Public Use
  Company Number: US-ABBOTT-07P-163-0378099-00

PATIENT
  Sex: Female

DRUGS (4)
  1. SYNTHROID [Suspect]
     Indication: HYPOTHYROIDISM
     Route: 048
     Dates: start: 20070619, end: 20070802
  2. SYNTHROID [Suspect]
     Dates: start: 20070818
  3. LORATADINE [Concomitant]
     Indication: HYPERSENSITIVITY
     Dates: start: 20070802
  4. LORATADINE [Concomitant]
     Dates: end: 20070628

REACTIONS (1)
  - ARTHRALGIA [None]
